FAERS Safety Report 18647419 (Version 2)
Quarter: 2021Q1

REPORT INFORMATION
  Report Type: Spontaneous
  Country: US (occurrence: US)
  Receive Date: 20201222
  Receipt Date: 20210315
  Transmission Date: 20210419
  Serious: No
  Sender: FDA-Public Use
  Company Number: US-EMD SERONO-7123805

PATIENT
  Sex: Male

DRUGS (1)
  1. REBIF [Suspect]
     Active Substance: INTERFERON BETA-1A
     Indication: PRODUCT USED FOR UNKNOWN INDICATION
     Route: 058
     Dates: start: 20061023, end: 20210117

REACTIONS (4)
  - Hypertension [Not Recovered/Not Resolved]
  - Intervertebral disc space narrowing [Recovering/Resolving]
  - Muscular weakness [Unknown]
  - Blood cholesterol increased [Not Recovered/Not Resolved]
